FAERS Safety Report 5217459-2 (Version None)
Quarter: 2007Q1

REPORT INFORMATION
  Report Type: 
  Country: None (occurrence: None)
  Receive Date: 20070124
  Receipt Date: 20060309
  Transmission Date: 20070707
  Serious: No
  Sender: FDA-Public Use
  Company Number: US-GLAXOSMITHKLINE-A0596921A

PATIENT
  Age: 34 Year
  Sex: Female

DRUGS (2)
  1. PAXIL CR [Suspect]
     Dosage: 25MG PER DAY
     Route: 048
     Dates: start: 20060307, end: 20060308
  2. NUVARING [Concomitant]

REACTIONS (5)
  - DIARRHOEA [None]
  - HYPERHIDROSIS [None]
  - INSOMNIA [None]
  - MUSCLE SPASMS [None]
  - PARAESTHESIA [None]
